FAERS Safety Report 23054131 (Version 1)
Quarter: 2023Q4

REPORT INFORMATION
  Report Type: Spontaneous
  Country: US (occurrence: None)
  Receive Date: 20231010
  Receipt Date: 20231010
  Transmission Date: 20240109
  Serious: Yes (Other)
  Sender: FDA-Public Use
  Company Number: None

PATIENT
  Age: 21 Year
  Sex: Female
  Weight: 108 kg

DRUGS (1)
  1. AUVELITY [Suspect]
     Active Substance: BUPROPION HYDROCHLORIDE\DEXTROMETHORPHAN HYDROBROMIDE
     Indication: Depression
     Dosage: OTHER QUANTITY : 2 TABLET(S);?FREQUENCY : TWICE A DAY;?
     Route: 048
     Dates: start: 20231006, end: 20231009

REACTIONS (6)
  - Skin burning sensation [None]
  - Panic disorder [None]
  - Dizziness [None]
  - Hypoaesthesia oral [None]
  - Pharyngeal hypoaesthesia [None]
  - Dysphagia [None]

NARRATIVE: CASE EVENT DATE: 20231009
